FAERS Safety Report 8299802-3 (Version None)
Quarter: 2012Q2

REPORT INFORMATION
  Report Type: 
  Country: None (occurrence: None)
  Receive Date: 20120419
  Receipt Date: 20120419
  Transmission Date: 20120825
  Serious: Yes (Other)
  Sender: FDA-Public Use
  Company Number: None

PATIENT
  Age: 7 Year
  Sex: Male

DRUGS (1)
  1. DEXTROAMPHETAMINE [Suspect]
     Indication: DRUG DISPENSING ERROR
     Route: 048

REACTIONS (2)
  - PRODUCT NAME CONFUSION [None]
  - INTERCEPTED DRUG DISPENSING ERROR [None]
